FAERS Safety Report 6516906-3 (Version None)
Quarter: 2009Q4

REPORT INFORMATION
  Report Type: 
  Country: None (occurrence: None)
  Receive Date: 20091223
  Receipt Date: 20091211
  Transmission Date: 20100525
  Serious: Yes (Other)
  Sender: FDA-Public Use
  Company Number: US-JNJFOC-20091204733

PATIENT
  Sex: Female
  Weight: 104.33 kg

DRUGS (1)
  1. TYLENOL SINUS CONGESTION + PAIN DAYTIME RAPID RELEASE [Suspect]
     Indication: SINUS HEADACHE
     Dosage: 1 GELCAP AT 11:00, FOLLOWED BY 2 GELCAPS AT 23:00

REACTIONS (11)
  - ABDOMINAL PAIN [None]
  - ABDOMINAL PAIN UPPER [None]
  - BACK INJURY [None]
  - DRUG INEFFECTIVE [None]
  - HAEMOPTYSIS [None]
  - JOINT INJURY [None]
  - LOSS OF CONSCIOUSNESS [None]
  - MUSCULAR WEAKNESS [None]
  - NAUSEA [None]
  - PRODUCT QUALITY ISSUE [None]
  - VOMITING [None]
